FAERS Safety Report 11220560 (Version 5)
Quarter: 2016Q1

REPORT INFORMATION
  Report Type: Spontaneous
  Country: JP (occurrence: JP)
  Receive Date: 20150626
  Receipt Date: 20160105
  Transmission Date: 20160525
  Serious: Yes (Hospitalization, Other)
  Sender: FDA-Public Use
  Company Number: JP-UCBSA-2015020680

PATIENT
  Age: 1 Year
  Sex: Male

DRUGS (4)
  1. ONON [Suspect]
     Active Substance: PRANLUKAST
     Indication: PRODUCT USED FOR UNKNOWN INDICATION
     Dosage: DAILY DOSE: 70 MG
     Route: 048
     Dates: start: 20150219
  2. PHENOBAL [Concomitant]
     Active Substance: PHENOBARBITAL
     Indication: PRODUCT USED FOR UNKNOWN INDICATION
     Dosage: UNK
     Route: 048
  3. KEPPRA [Suspect]
     Active Substance: LEVETIRACETAM
     Indication: EPILEPSY
     Dosage: DAILY DOSE: 100 MG
     Route: 048
     Dates: start: 20150115, end: 20150604
  4. SELENICA-R [Suspect]
     Active Substance: VALPROATE SODIUM
     Indication: PRODUCT USED FOR UNKNOWN INDICATION
     Dosage: DAILY DOSE: 250 MG
     Route: 048
     Dates: start: 20141002

REACTIONS (3)
  - Off label use [Unknown]
  - Rash generalised [Recovered/Resolved]
  - Febrile convulsion [Recovered/Resolved]

NARRATIVE: CASE EVENT DATE: 20150115
